FAERS Safety Report 7348270-4 (Version None)
Quarter: 2011Q1

REPORT INFORMATION
  Report Type: 
  Country: None (occurrence: None)
  Receive Date: 20110311
  Receipt Date: 20110225
  Transmission Date: 20110831
  Serious: Yes (Hospitalization, Other)
  Sender: FDA-Public Use
  Company Number: US-BAYER-2010-005556

PATIENT
  Sex: Female
  Weight: 64.399 kg

DRUGS (1)
  1. MIRENA [Suspect]
     Indication: CONTRACEPTION
     Dosage: DAILY DOSE 20 ?G
     Route: 015
     Dates: start: 20051214, end: 20101221

REACTIONS (2)
  - DEVICE DISLOCATION [None]
  - PROCEDURAL PAIN [None]
